FAERS Safety Report 17805425 (Version 1)
Quarter: 2020Q2

REPORT INFORMATION
  Report Type: Spontaneous
  Country: CZ (occurrence: CZ)
  Receive Date: 20200519
  Receipt Date: 20200519
  Transmission Date: 20200714
  Serious: Yes (Other)
  Sender: FDA-Public Use
  Company Number: NVSC2019CZ043181

PATIENT
  Age: 50 Year
  Sex: Male

DRUGS (15)
  1. ENTRESTO [Suspect]
     Active Substance: SACUBITRIL\VALSARTAN
     Dosage: 200 MG, BID (1-0-1) (97/103 MG)
     Route: 065
     Dates: start: 201710
  2. FURON [Concomitant]
     Active Substance: FUROSEMIDE
     Dosage: 40 MG, QD (1-0-)
     Route: 048
     Dates: end: 201708
  3. NOLPAZA [Concomitant]
     Active Substance: PANTOPRAZOLE SODIUM
     Indication: PRODUCT USED FOR UNKNOWN INDICATION
     Dosage: 40 MG, QD (0-0-1)
     Route: 048
     Dates: start: 201707, end: 201708
  4. NOLPAZA [Concomitant]
     Active Substance: PANTOPRAZOLE SODIUM
     Dosage: 40 MG, QD (0-0-1)
     Route: 048
     Dates: start: 201710, end: 201803
  5. CORDARONE [Concomitant]
     Active Substance: AMIODARONE HYDROCHLORIDE
     Dosage: 200 MG, QD (1-0-0)
     Route: 048
     Dates: start: 201710, end: 201803
  6. SOBYCOR [Concomitant]
     Active Substance: BISOPROLOL FUMARATE
     Indication: PRODUCT USED FOR UNKNOWN INDICATION
     Dosage: 5 MG, QD (1-0-0)
     Route: 048
     Dates: start: 201707, end: 201708
  7. NEBILET [Concomitant]
     Active Substance: NEBIVOLOL
     Indication: PRODUCT USED FOR UNKNOWN INDICATION
     Dosage: 0.5 DF, QD (1/2-0-0)
     Route: 048
     Dates: start: 201710, end: 201803
  8. ENTRESTO [Suspect]
     Active Substance: SACUBITRIL\VALSARTAN
     Indication: PRODUCT USED FOR UNKNOWN INDICATION
     Dosage: 100 MG, BID (1-0-1) (49/51 MG)
     Route: 065
     Dates: start: 201707, end: 201708
  9. CORDARONE [Concomitant]
     Active Substance: AMIODARONE HYDROCHLORIDE
     Indication: PRODUCT USED FOR UNKNOWN INDICATION
     Dosage: 200 MG, QD (1-0-0)
     Route: 048
     Dates: start: 201707, end: 201708
  10. FURON [Concomitant]
     Active Substance: FUROSEMIDE
     Indication: PRODUCT USED FOR UNKNOWN INDICATION
     Dosage: 40 MG, BID (2-1-0)
     Route: 048
     Dates: start: 201707
  11. VEROSPIRON [Concomitant]
     Active Substance: SPIRONOLACTONE
     Indication: PRODUCT USED FOR UNKNOWN INDICATION
     Dosage: 0.5 DF, QD (0-1/2-0)
     Route: 048
     Dates: start: 201707, end: 201708
  12. DABIGATRAN [Concomitant]
     Active Substance: DABIGATRAN
     Indication: PRODUCT USED FOR UNKNOWN INDICATION
     Dosage: 110 OT, BID
     Route: 065
     Dates: start: 201710, end: 201803
  13. FURSEMIDE [Concomitant]
     Active Substance: FUROSEMIDE
     Indication: PRODUCT USED FOR UNKNOWN INDICATION
     Dosage: 20 MG, Q48H
     Route: 065
     Dates: start: 201710, end: 201803
  14. WARFARIN [Concomitant]
     Active Substance: WARFARIN
     Indication: PRODUCT USED FOR UNKNOWN INDICATION
     Dosage: UNK UNK, QD (0-6-0) (SD), (0-3-0) (LD)
     Route: 065
     Dates: start: 201707, end: 201708
  15. VEROSPIRON [Concomitant]
     Active Substance: SPIRONOLACTONE
     Dosage: 0.5 DF, QD (0-1/2-0)
     Route: 048
     Dates: start: 201710, end: 201803

REACTIONS (2)
  - N-terminal prohormone brain natriuretic peptide increased [Recovered/Resolved]
  - Ejection fraction decreased [Recovered/Resolved]
